FAERS Safety Report 10547182 (Version 3)
Quarter: 2015Q1

REPORT INFORMATION
  Report Type: Report from Study
  Country: JP (occurrence: JP)
  Receive Date: 20141027
  Receipt Date: 20150309
  Transmission Date: 20150720
  Serious: Yes (Death)
  Sender: FDA-Public Use
  Company Number: JP-009507513-1410JPN011739

PATIENT
  Age: 87 Year
  Sex: Female

DRUGS (14)
  1. ALOSITOL [Concomitant]
     Active Substance: ALLOPURINOL
     Dosage: DAILY DOSAGE UNKNOWN, FORMULATION POR
     Route: 048
     Dates: end: 20111129
  2. VALPROATE SODIUM. [Concomitant]
     Active Substance: VALPROATE SODIUM
     Indication: EPILEPSY
     Dosage: 4 DF, QD (FORMULATION: POR, DIVIDED DOSE FREQUENCY UNKNOWN)
     Route: 048
     Dates: start: 20110903, end: 20111129
  3. CARBIDOPA (+) LEVODOPA [Concomitant]
     Active Substance: CARBIDOPA\LEVODOPA
     Dosage: DAILY DOSAGE UNKNOWN, FORMULATION POR
     Route: 048
     Dates: end: 20111129
  4. ACECOL [Concomitant]
     Active Substance: TEMOCAPRIL HYDROCHLORIDE
     Dosage: DAILY DOSAGE UNKNOWN, FORMULATION POR
     Route: 048
     Dates: end: 20111129
  5. KENTAN [Concomitant]
     Dosage: DAILY DOSAGE UNKNOWN, FORMULATION POR
     Route: 048
     Dates: end: 20111129
  6. DIAZOXIDE CAPSULES 25 MG ^MSD^ [Suspect]
     Active Substance: DIAZOXIDE
     Dosage: 50 MG, BID
     Route: 048
     Dates: start: 20111017, end: 20111024
  7. MENESIT [Concomitant]
     Active Substance: CARBIDOPA\LEVODOPA
     Indication: PARKINSONISM
     Dosage: 300 MG, QD (DIVIDED DOSE FREQUENCY UNKNOWN)
     Route: 048
     Dates: end: 20111129
  8. NITOGIS [Concomitant]
     Dosage: 1 DF, QD (DIVIDED DOSE FREQUENCY UNKNOWN)
     Route: 048
     Dates: end: 20111129
  9. CISDYNE [Concomitant]
     Active Substance: CARBOCYSTEINE
     Dosage: DAILY DOSAGE UNKNOWN, FORMULATION POR
     Route: 048
     Dates: end: 20111129
  10. MUCODYNE [Concomitant]
     Active Substance: CARBOCYSTEINE
     Indication: BRONCHITIS CHRONIC
     Dosage: 1500 MG, QD (FORMULATION: POR, DIVIDED DOSE FREQUENCY UNKNOWN)
     Route: 048
     Dates: end: 20111129
  11. AMAZOLON [Concomitant]
     Indication: APATHY
     Dosage: 150 MG, QD (FORMULATION: POR, DIVIDED DOSE FREQUENCY UNKNOWN)
     Route: 048
     Dates: end: 20111129
  12. DIAZOXIDE CAPSULES 25 MG ^MSD^ [Suspect]
     Active Substance: DIAZOXIDE
     Indication: HYPOGLYCAEMIA
     Dosage: 25 MG, BID
     Route: 048
     Dates: start: 20111011, end: 20111016
  13. DIAZOXIDE CAPSULES 25 MG ^MSD^ [Suspect]
     Active Substance: DIAZOXIDE
     Dosage: 50 MG IN THE MORNING AND 25 MG IN THE EVENING, TOTAL DAILY DOSE 75 MG
     Route: 048
     Dates: start: 20111025, end: 20111129
  14. LANSOPRAZOLE. [Concomitant]
     Active Substance: LANSOPRAZOLE
     Indication: GASTROOESOPHAGEAL REFLUX DISEASE
     Dosage: 15 MG, QD
     Route: 048
     Dates: end: 20111129

REACTIONS (3)
  - Cardio-respiratory arrest [Fatal]
  - Pneumonia [Fatal]
  - Vomiting [Fatal]

NARRATIVE: CASE EVENT DATE: 20111129
